FAERS Safety Report 9502603 (Version 1)
Quarter: 2013Q3

REPORT INFORMATION
  Report Type: Spontaneous
  Country: US (occurrence: US)
  Receive Date: 20130906
  Receipt Date: 20130906
  Transmission Date: 20140515
  Serious: No
  Sender: FDA-Public Use
  Company Number: US-JNJFOC-20130815202

PATIENT
  Age: 31 Year
  Sex: Female
  Weight: 45.36 kg

DRUGS (5)
  1. INVEGA SUSTENNA [Suspect]
     Indication: PSYCHOTIC DISORDER
     Route: 030
     Dates: start: 20130821
  2. INVEGA SUSTENNA [Suspect]
     Indication: PSYCHOTIC DISORDER
     Route: 030
  3. INVEGA SUSTENNA [Suspect]
     Indication: BIPOLAR DISORDER
     Route: 030
  4. INVEGA SUSTENNA [Suspect]
     Indication: BIPOLAR DISORDER
     Route: 030
     Dates: start: 20130821
  5. TRAZODONE [Concomitant]
     Indication: SLEEP DISORDER
     Dosage: DAILY AT BEDTIME
     Route: 048

REACTIONS (5)
  - Contusion [Not Recovered/Not Resolved]
  - Drug dose omission [Recovered/Resolved]
  - Adverse event [Unknown]
  - Treatment noncompliance [Unknown]
  - Muscle spasms [Not Recovered/Not Resolved]
